FAERS Safety Report 12190826 (Version 1)
Quarter: 2016Q1

REPORT INFORMATION
  Report Type: Spontaneous
  Country: US (occurrence: None)
  Receive Date: 20160317
  Receipt Date: 20160317
  Transmission Date: 20160526
  Serious: No
  Sender: FDA-Public Use
  Company Number: None

PATIENT
  Age: 55 Year
  Sex: Female

DRUGS (1)
  1. HUMIRA [Suspect]
     Active Substance: ADALIMUMAB
     Indication: RHEUMATOID ARTHRITIS
     Dosage: 40MG PEN EVERY OTEHR WEEK
     Route: 058
     Dates: start: 20160204, end: 20160304

REACTIONS (3)
  - Immune system disorder [None]
  - Skin infection [None]
  - Furuncle [None]

NARRATIVE: CASE EVENT DATE: 20160218
